FAERS Safety Report 8609786-3 (Version None)
Quarter: 2012Q3

REPORT INFORMATION
  Report Type: 
  Country: None (occurrence: None)
  Receive Date: 20120821
  Receipt Date: 20120813
  Transmission Date: 20120928
  Serious: Yes (Death)
  Sender: FDA-Public Use
  Company Number: HU-TEVA-353776ISR

PATIENT
  Age: 29 Year
  Sex: Female

DRUGS (16)
  1. IFOSFAMIDE [Suspect]
     Route: 065
     Dates: start: 20070101
  2. CARBOPLATIN [Suspect]
     Indication: NON-HODGKIN'S LYMPHOMA STAGE IV
     Route: 065
     Dates: start: 20060101
  3. ETOPOSIDE [Suspect]
     Indication: NON-HODGKIN'S LYMPHOMA STAGE IV
     Route: 065
     Dates: start: 20060101
  4. ETOPOSIDE [Suspect]
     Route: 065
     Dates: start: 20070101
  5. DACARBAZINE [Suspect]
     Indication: NON-HODGKIN'S LYMPHOMA STAGE IV
     Route: 065
     Dates: start: 20060101
  6. BLEOMYCIN [Suspect]
     Indication: NON-HODGKIN'S LYMPHOMA STAGE IV
     Route: 065
     Dates: start: 20060101
  7. IFOSFAMIDE [Suspect]
     Indication: NON-HODGKIN'S LYMPHOMA STAGE IV
     Route: 065
     Dates: start: 20060101
  8. VINORELBINE [Suspect]
     Indication: NON-HODGKIN'S LYMPHOMA STAGE IV
     Route: 065
     Dates: start: 20070101
  9. CYTARABINE [Suspect]
     Indication: NON-HODGKIN'S LYMPHOMA STAGE IV
     Route: 065
     Dates: start: 20060101
  10. DOXORUBICIN HCL [Suspect]
     Indication: NON-HODGKIN'S LYMPHOMA STAGE IV
     Route: 065
     Dates: start: 20060101
  11. VINBLASTINE SULFATE [Suspect]
     Indication: NON-HODGKIN'S LYMPHOMA STAGE IV
     Route: 065
     Dates: start: 20060101
  12. DOXORUBICIN HCL [Suspect]
  13. DEXAMETHASONE [Suspect]
     Indication: NON-HODGKIN'S LYMPHOMA STAGE IV
     Route: 065
     Dates: start: 20060101
  14. CISPLATIN [Suspect]
     Indication: NON-HODGKIN'S LYMPHOMA STAGE IV
     Route: 065
     Dates: start: 20060101
  15. GEMCITABINE HYDROCHLORIDE [Suspect]
     Indication: NON-HODGKIN'S LYMPHOMA STAGE IV
     Route: 065
     Dates: start: 20070101
  16. RITUXIMAB [Suspect]
     Indication: NON-HODGKIN'S LYMPHOMA STAGE IV
     Route: 065
     Dates: start: 20070101

REACTIONS (2)
  - CYTOMEGALOVIRUS INFECTION [None]
  - HISTIOCYTOSIS HAEMATOPHAGIC [None]
